FAERS Safety Report 10182944 (Version 1)
Quarter: 2014Q2

REPORT INFORMATION
  Report Type: Spontaneous
  Country: US (occurrence: US)
  Receive Date: 20140520
  Receipt Date: 20140520
  Transmission Date: 20141212
  Serious: No
  Sender: FDA-Public Use
  Company Number: US-PFIZER INC-2014135239

PATIENT
  Sex: Female

DRUGS (2)
  1. TIKOSYN [Suspect]
     Dosage: 125 UG, 2X/DAY
  2. CELEXA [Interacting]
     Indication: DEPRESSION
     Dosage: UNK

REACTIONS (4)
  - Visual impairment [Unknown]
  - Dizziness [Unknown]
  - Balance disorder [Unknown]
  - Drug interaction [Unknown]
